FAERS Safety Report 8240889-1 (Version None)
Quarter: 2012Q1

REPORT INFORMATION
  Report Type: 
  Country: None (occurrence: None)
  Receive Date: 20120328
  Receipt Date: 20120315
  Transmission Date: 20120608
  Serious: Yes (Hospitalization, Other)
  Sender: FDA-Public Use
  Company Number: US-ELI_LILLY_AND_COMPANY-US201201004624

PATIENT
  Age: 70 Year
  Sex: Male
  Weight: 70 kg

DRUGS (5)
  1. CORTICOSTEROID NOS [Concomitant]
     Dosage: 8 MG, BID
     Dates: start: 20120104
  2. CARBOPLATIN [Concomitant]
     Dosage: UNK, UNKNOWN
  3. VITAMIN B-12 [Concomitant]
     Dosage: 1000 MCG UNKNOWN
     Dates: start: 20111229
  4. ALIMTA [Suspect]
     Indication: NON-SMALL CELL LUNG CANCER STAGE IV
     Dosage: 900 MG, EVERY 21 DAYS
     Dates: start: 20120105
  5. FOLIC ACID [Concomitant]
     Dosage: 1 MG, UNKNOWN
     Route: 048
     Dates: start: 20111229

REACTIONS (1)
  - PANCREATITIS ACUTE [None]
